FAERS Safety Report 5861069-0 (Version None)
Quarter: 2008Q3

REPORT INFORMATION
  Report Type: 
  Country: None (occurrence: None)
  Receive Date: 20080827
  Receipt Date: 20080812
  Transmission Date: 20090109
  Serious: Yes (Other)
  Sender: FDA-Public Use
  Company Number: US-MERCK-0808USA02121

PATIENT
  Age: 69 Year
  Sex: Female

DRUGS (4)
  1. VYTORIN [Suspect]
     Indication: BLOOD CHOLESTEROL INCREASED
     Route: 048
     Dates: start: 20060101, end: 20080101
  2. RANITIDINE HYDROCHLORIDE [Concomitant]
     Route: 065
  3. XANAX [Concomitant]
     Route: 065
  4. DIETARY SUPPLEMENT (UNSPECIFIED) [Concomitant]
     Route: 065

REACTIONS (3)
  - BLOOD CHOLESTEROL INCREASED [None]
  - BREAST CANCER [None]
  - DRUG INEFFECTIVE [None]
